FAERS Safety Report 5497434-3 (Version None)
Quarter: 2007Q4

REPORT INFORMATION
  Report Type: 
  Country: None (occurrence: None)
  Receive Date: 20071025
  Receipt Date: 20070926
  Transmission Date: 20080405
  Serious: No
  Sender: FDA-Public Use
  Company Number: US-BRISTOL-MYERS SQUIBB COMPANY-13920608

PATIENT
  Age: 57 Year
  Sex: Female
  Weight: 104 kg

DRUGS (5)
  1. GLUCOPHAGE XR [Suspect]
     Indication: TYPE 2 DIABETES MELLITUS
  2. GLUCOPHAGE [Suspect]
     Indication: TYPE 2 DIABETES MELLITUS
     Dates: start: 19980101
  3. COREG [Concomitant]
  4. LISINOPRIL [Concomitant]
  5. GLUCOTROL [Concomitant]

REACTIONS (3)
  - DIARRHOEA [None]
  - HYPOAESTHESIA [None]
  - MEDICATION RESIDUE [None]
